FAERS Safety Report 4383079-5 (Version None)
Quarter: 2004Q2

REPORT INFORMATION
  Report Type: 
  Country: None (occurrence: None)
  Receive Date: 20040618
  Receipt Date: 20040607
  Transmission Date: 20050107
  Serious: No
  Sender: FDA-Public Use
  Company Number: 04P-056-0256924-00

PATIENT
  Age: 33 Year
  Sex: Male

DRUGS (7)
  1. DEPAKENE [Suspect]
     Indication: POST-TRAUMATIC EPILEPSY
     Dosage: 1000 MG, 1 IN 1 D, ORAL
     Route: 048
     Dates: start: 20030101
  2. TENOFOVIR (TENOFOVIR) [Suspect]
     Indication: HIV TEST POSITIVE
     Dosage: 425 MG, ORAL
     Route: 048
     Dates: start: 20000101, end: 20040101
  3. DIDANOSINE (DIDANOSINE) [Suspect]
     Indication: HIV TEST POSITIVE
     Dosage: ORAL
     Route: 048
     Dates: start: 20000101, end: 20040101
  4. NELFINAVIR MESILATE (NELFINAVIR MESILATE) [Suspect]
     Indication: HIV TEST POSITIVE
     Dosage: ORAL
     Route: 048
     Dates: start: 20000101, end: 20040101
  5. BUPRENORPHINE HCL [Concomitant]
  6. FLUPHENAZINE HCL [Concomitant]
  7. OXAZEPAM [Concomitant]

REACTIONS (3)
  - BLOOD HIV RNA INCREASED [None]
  - CD4 LYMPHOCYTES DECREASED [None]
  - DRUG INTERACTION [None]
